FAERS Safety Report 17327771 (Version 3)
Quarter: 2020Q1

REPORT INFORMATION
  Report Type: Report from Study
  Country: US (occurrence: US)
  Receive Date: 20200127
  Receipt Date: 20200309
  Transmission Date: 20200409
  Serious: Yes (Hospitalization, Other)
  Sender: FDA-Public Use
  Company Number: US-PFIZER INC-2020025113

PATIENT
  Age: 58 Year
  Sex: Female

DRUGS (1)
  1. SUTENT [Suspect]
     Active Substance: SUNITINIB MALATE
     Indication: GASTROINTESTINAL STROMAL TUMOUR
     Dosage: 50 MG, CYCLIC (ONCE DAILY FOR FOUR WEEKS ON, TWO WEEKS OFF)
     Route: 048
     Dates: start: 20200113, end: 20200117

REACTIONS (18)
  - Fatigue [Unknown]
  - Nausea [Unknown]
  - Dyspnoea [Unknown]
  - Muscular weakness [Unknown]
  - Headache [Unknown]
  - Diarrhoea [Unknown]
  - Hypertension [Recovered/Resolved]
  - Abdominal pain upper [Unknown]
  - Hypotension [Recovered/Resolved]
  - Musculoskeletal chest pain [Unknown]
  - Weight increased [Unknown]
  - Sluggishness [Unknown]
  - Decreased appetite [Unknown]
  - Muscle spasms [Unknown]
  - Heart rate increased [Recovering/Resolving]
  - Myocardial infarction [Recovering/Resolving]
  - Troponin increased [Unknown]
  - Flank pain [Unknown]

NARRATIVE: CASE EVENT DATE: 2020
